FAERS Safety Report 15630133 (Version 1)
Quarter: 2018Q4

REPORT INFORMATION
  Report Type: Spontaneous
  Country: GB (occurrence: GB)
  Receive Date: 20181118
  Receipt Date: 20181118
  Transmission Date: 20190205
  Serious: Yes (Disabling)
  Sender: FDA-Public Use
  Company Number: GB-TEVA-107625ISR

PATIENT
  Age: 71 Year
  Sex: Male
  Weight: 70 kg

DRUGS (6)
  1. RAMIPRIL. [Suspect]
     Active Substance: RAMIPRIL
     Dosage: 5 MILLIGRAM DAILY;
     Route: 048
  2. ATENOLOL. [Suspect]
     Active Substance: ATENOLOL
     Dosage: 50 MILLIGRAM DAILY;
     Route: 048
     Dates: end: 20050822
  3. FRUMIL [Suspect]
     Active Substance: AMILORIDE HYDROCHLORIDE\FUROSEMIDE
     Route: 048
  4. ACETYLSALICYLIC ACID [Concomitant]
     Active Substance: ASPIRIN
     Dosage: 75 MILLIGRAM DAILY;
     Route: 048
  5. FUROSEMIDE. [Concomitant]
     Active Substance: FUROSEMIDE
     Dosage: 80 MILLIGRAM DAILY;
     Route: 048
  6. AMIODARONE [Suspect]
     Active Substance: AMIODARONE
     Dosage: 100 MILLIGRAM DAILY;
     Route: 048
     Dates: end: 20050822

REACTIONS (4)
  - Hyperkalaemia [Recovering/Resolving]
  - Atrioventricular block first degree [Recovering/Resolving]
  - Atrial fibrillation [Recovering/Resolving]
  - Heart rate decreased [Recovering/Resolving]

NARRATIVE: CASE EVENT DATE: 20050822
